FAERS Safety Report 9344620 (Version 1)
Quarter: 2013Q2

REPORT INFORMATION
  Report Type: Spontaneous
  Country: US (occurrence: None)
  Receive Date: 20130611
  Receipt Date: 20130611
  Transmission Date: 20140414
  Serious: Yes (Other)
  Sender: FDA-Public Use
  Company Number: None

PATIENT
  Age: 29 Year
  Sex: Male
  Weight: 86.18 kg

DRUGS (1)
  1. CHANTIX [Suspect]
     Indication: SMOKING CESSATION THERAPY
     Dosage: 0.5 MG, ONCE/TWICE PER DAY, PO
     Route: 048
     Dates: start: 20080401, end: 20080701

REACTIONS (2)
  - Hypothyroidism [None]
  - Blood thyroid stimulating hormone increased [None]
